FAERS Safety Report 14900107 (Version 1)
Quarter: 2018Q2

REPORT INFORMATION
  Report Type: Spontaneous
  Country: FR (occurrence: FR)
  Receive Date: 20180516
  Receipt Date: 20180516
  Transmission Date: 20180711
  Serious: Yes (Other)
  Sender: FDA-Public Use
  Company Number: FR-MERCK KGAA-2047882

PATIENT
  Sex: Female

DRUGS (1)
  1. NOVOTHYROX [Suspect]
     Active Substance: LEVOTHYROXINE SODIUM
     Indication: POST PROCEDURAL HYPOTHYROIDISM

REACTIONS (11)
  - Loss of personal independence in daily activities [None]
  - Arthralgia [None]
  - Headache [None]
  - Suicidal ideation [None]
  - Tendonitis [None]
  - Memory impairment [None]
  - Dizziness [None]
  - Confusional state [None]
  - Visual impairment [None]
  - Hypertension [None]
  - Insomnia [None]
